FAERS Safety Report 8180307-5 (Version None)
Quarter: 2012Q1

REPORT INFORMATION
  Report Type: 
  Country: None (occurrence: None)
  Receive Date: 20120215
  Receipt Date: 20120203
  Transmission Date: 20120608
  Serious: Yes (Other)
  Sender: FDA-Public Use
  Company Number: 2012031002

PATIENT
  Age: 74 Year
  Sex: Male

DRUGS (1)
  1. ALBURX [Suspect]
     Dates: start: 20120202, end: 20120203

REACTIONS (1)
  - ANGIOEDEMA [None]
